FAERS Safety Report 24902756 (Version 1)
Quarter: 2025Q1

REPORT INFORMATION
  Report Type: Spontaneous
  Country: SG (occurrence: SG)
  Receive Date: 20250130
  Receipt Date: 20250130
  Transmission Date: 20250408
  Serious: Yes (Hospitalization, Other)
  Sender: GLAXOSMITHKLINE
  Company Number: SG-GSK-SG2025APC008594

PATIENT

DRUGS (3)
  1. LAMOTRIGINE [Suspect]
     Active Substance: LAMOTRIGINE
     Indication: Seizure
     Route: 048
  2. PHENYTOIN [Suspect]
     Active Substance: PHENYTOIN
     Indication: Seizure
  3. VALPROIC ACID [Suspect]
     Active Substance: VALPROIC ACID
     Indication: Seizure

REACTIONS (1)
  - Hepatitis cholestatic [Unknown]
